FAERS Safety Report 13262545 (Version 3)
Quarter: 2017Q2

REPORT INFORMATION
  Report Type: Report from Study
  Country: US (occurrence: US)
  Receive Date: 20170223
  Receipt Date: 20170517
  Transmission Date: 20170830
  Serious: Yes (Other)
  Sender: FDA-Public Use
  Company Number: PHEH2017US005218

PATIENT
  Age: 63 Year
  Sex: Female
  Weight: 52.61 kg

DRUGS (23)
  1. ASA [Concomitant]
     Active Substance: ASPIRIN
     Indication: PRODUCT USED FOR UNKNOWN INDICATION
     Dosage: 1 DF, QD
     Route: 048
  2. TIZANIDINE. [Concomitant]
     Active Substance: TIZANIDINE
     Indication: PRODUCT USED FOR UNKNOWN INDICATION
     Dosage: 1 DF, QHS (AT BED TIME) FOR 90 DAYS
     Route: 048
     Dates: start: 20160330
  3. HUMULIN R [Concomitant]
     Active Substance: INSULIN HUMAN
     Indication: PRODUCT USED FOR UNKNOWN INDICATION
     Dosage: UNK
     Route: 065
  4. METRONIDAZOL [Concomitant]
     Active Substance: METRONIDAZOLE
     Indication: PRODUCT USED FOR UNKNOWN INDICATION
     Dosage: 500 MG, QD
     Route: 065
  5. LEVSIN [Concomitant]
     Active Substance: HYOSCYAMINE SULFATE
     Indication: PRODUCT USED FOR UNKNOWN INDICATION
     Dosage: 1 DF, PRN
     Route: 048
  6. TRAMADOL. [Concomitant]
     Active Substance: TRAMADOL
     Indication: PAIN
     Dosage: 1 DF, QD
     Route: 048
  7. LANTUS [Concomitant]
     Active Substance: INSULIN GLARGINE
     Indication: PRODUCT USED FOR UNKNOWN INDICATION
     Dosage: 14 U, QD
     Route: 058
  8. PROTONIX [Concomitant]
     Active Substance: PANTOPRAZOLE SODIUM
     Indication: PRODUCT USED FOR UNKNOWN INDICATION
     Dosage: 1 DF, QD AS NEEDED
     Route: 048
  9. SPIRONOLACTONE. [Concomitant]
     Active Substance: SPIRONOLACTONE
     Indication: BLOOD PRESSURE MEASUREMENT
     Dosage: 1 DF, QD
     Route: 048
  10. COSENTYX [Suspect]
     Active Substance: SECUKINUMAB
     Indication: PSORIASIS
     Dosage: 150 MG, QMO (EVERY 4 WEEKS)
     Route: 058
  11. ZYRTEC [Concomitant]
     Active Substance: CETIRIZINE HYDROCHLORIDE
     Indication: HYPERSENSITIVITY
     Dosage: 1 DF, QD
     Route: 048
  12. DILAUDID [Concomitant]
     Active Substance: HYDROMORPHONE HYDROCHLORIDE
     Indication: PRODUCT USED FOR UNKNOWN INDICATION
     Route: 048
  13. TEMAZEPAM. [Concomitant]
     Active Substance: TEMAZEPAM
     Indication: SLEEP DISORDER
     Dosage: 1 DF, QHS (AT BED TIME) FOR 30 DAYS
     Route: 048
     Dates: start: 20160930
  14. TYLENOL [Concomitant]
     Active Substance: ACETAMINOPHEN
     Indication: PAIN
     Dosage: 325 MG, PRN (WHEN NECESSARY)
     Route: 048
  15. OTEZLA [Concomitant]
     Active Substance: APREMILAST
     Indication: ARTHRITIS
     Dosage: 1 DF, BID
     Route: 065
     Dates: start: 20170321
  16. PROZAC [Concomitant]
     Active Substance: FLUOXETINE HYDROCHLORIDE
     Indication: PRODUCT USED FOR UNKNOWN INDICATION
     Dosage: 1 DF, QD
     Route: 048
  17. TRIAMCINOLONI ACETONIDUM [Concomitant]
     Indication: PRODUCT USED FOR UNKNOWN INDICATION
     Dosage: UNK, BID AS NEEDED FOR 90 DAYS
     Route: 065
     Dates: start: 20160330
  18. HYOSCYAMINE. [Concomitant]
     Active Substance: HYOSCYAMINE
     Indication: BLADDER DISORDER
     Dosage: 0.125 MG, PRN
     Route: 048
  19. BYSTOLIC [Concomitant]
     Active Substance: NEBIVOLOL HYDROCHLORIDE
     Dosage: 2.5 MG, QD
     Route: 048
  20. XANAX [Concomitant]
     Active Substance: ALPRAZOLAM
     Indication: PRODUCT USED FOR UNKNOWN INDICATION
     Dosage: 1 DF, QD
     Route: 048
  21. BYSTOLIC [Concomitant]
     Active Substance: NEBIVOLOL HYDROCHLORIDE
     Indication: BLOOD PRESSURE MEASUREMENT
     Dosage: 0.5 DF, QD AS NEEDED
     Route: 048
  22. COSENTYX [Suspect]
     Active Substance: SECUKINUMAB
     Indication: POLYARTHRITIS
  23. COSENTYX [Suspect]
     Active Substance: SECUKINUMAB
     Indication: PSORIATIC ARTHROPATHY

REACTIONS (27)
  - Psoriatic arthropathy [Unknown]
  - Erythema [Unknown]
  - Myalgia [Unknown]
  - Pain [Unknown]
  - Pollakiuria [Unknown]
  - Pruritus [Recovering/Resolving]
  - Joint swelling [Unknown]
  - Insomnia [Unknown]
  - Skin ulcer [Unknown]
  - Renal impairment [Unknown]
  - Muscular weakness [Unknown]
  - Fatigue [Not Recovered/Not Resolved]
  - Dyspnoea [Unknown]
  - Bladder disorder [Unknown]
  - Product use in unapproved indication [Unknown]
  - Cough [Unknown]
  - Joint stiffness [Unknown]
  - Cystitis interstitial [Unknown]
  - Dysuria [Unknown]
  - Condition aggravated [Unknown]
  - Macule [Unknown]
  - Memory impairment [Unknown]
  - Skin exfoliation [Unknown]
  - Arthralgia [Unknown]
  - Blood pressure decreased [Unknown]
  - Rash generalised [Recovering/Resolving]
  - Tenderness [Unknown]

NARRATIVE: CASE EVENT DATE: 20170321
